FAERS Safety Report 6727232-1 (Version None)
Quarter: 2010Q2

REPORT INFORMATION
  Report Type: 
  Country: None (occurrence: None)
  Receive Date: 20100517
  Receipt Date: 20100510
  Transmission Date: 20101027
  Serious: Yes (Death, Other)
  Sender: FDA-Public Use
  Company Number: TR-ELI_LILLY_AND_COMPANY-TR201005002370

PATIENT
  Age: 81 Year
  Sex: Female

DRUGS (3)
  1. HUMALOG MIX 50/50 [Suspect]
     Indication: DIABETES MELLITUS
     Dosage: 15 IU, EACH MORNING
     Route: 058
     Dates: start: 20091101, end: 20091212
  2. HUMALOG MIX 50/50 [Suspect]
     Dosage: 15 IU, EACH EVENING
     Route: 058
     Dates: start: 20091101, end: 20091212
  3. DIURETICS [Concomitant]
     Indication: HEPATIC CIRRHOSIS
     Dosage: UNK, 2/D
     Dates: start: 20090801, end: 20091212

REACTIONS (1)
  - HEPATIC CIRRHOSIS [None]
